FAERS Safety Report 8519787 (Version 4)
Quarter: 2013Q2

REPORT INFORMATION
  Report Type: Spontaneous
  Country: US (occurrence: US)
  Receive Date: 20120418
  Receipt Date: 20130410
  Transmission Date: 20140414
  Serious: Yes (Other)
  Sender: FDA-Public Use
  Company Number: US-ASTRAZENECA-2012SE23701

PATIENT
  Age: 62 Year
  Sex: Female
  Weight: 58.1 kg

DRUGS (9)
  1. TOPROL XL [Suspect]
     Indication: HYPERTENSION
     Route: 048
     Dates: start: 200701
  2. TOPROL XL [Suspect]
     Indication: HYPERTENSION
     Dosage: GENERIC FORM
     Route: 048
     Dates: start: 200902
  3. TOPROL XL [Suspect]
     Indication: HYPERTENSION
     Route: 048
  4. TOPROL XL [Suspect]
     Indication: HYPERTENSION
     Route: 048
     Dates: start: 2009
  5. TOPROL XL [Suspect]
     Indication: HYPERTENSION
     Route: 048
     Dates: start: 201210
  6. TOPROL XL [Suspect]
     Indication: HYPERTENSION
     Route: 048
     Dates: start: 20130304
  7. VITAMIN D [Concomitant]
  8. VITAMIN C [Concomitant]
  9. TYLENOL [Concomitant]

REACTIONS (28)
  - Blood pressure increased [Unknown]
  - Heart rate increased [Unknown]
  - Tremor [Unknown]
  - Glossodynia [Unknown]
  - Nasal discomfort [Recovered/Resolved]
  - Chills [Unknown]
  - Feeling abnormal [Recovering/Resolving]
  - Speech disorder [Recovering/Resolving]
  - Adverse event [Unknown]
  - Oliguria [Recovered/Resolved]
  - Feeling cold [Recovering/Resolving]
  - Hypoaesthesia [Unknown]
  - Dyspnoea [Unknown]
  - Dizziness [Unknown]
  - Nervousness [Unknown]
  - Agitation [Recovering/Resolving]
  - Throat irritation [Recovering/Resolving]
  - Confusional state [Recovering/Resolving]
  - Dizziness [Recovering/Resolving]
  - Nausea [Recovering/Resolving]
  - Disturbance in attention [Recovering/Resolving]
  - Mental impairment [Recovering/Resolving]
  - Abdominal pain upper [Recovering/Resolving]
  - Peripheral coldness [Unknown]
  - Dysgeusia [Unknown]
  - Abdominal discomfort [Recovering/Resolving]
  - Off label use [Unknown]
  - Drug ineffective [Unknown]
